FAERS Safety Report 5139771-8 (Version None)
Quarter: 2006Q4

REPORT INFORMATION
  Report Type: 
  Country: None (occurrence: None)
  Receive Date: 20061024
  Receipt Date: 20061010
  Transmission Date: 20070319
  Serious: Yes (Hospitalization)
  Sender: FDA-Public Use
  Company Number: 229889

PATIENT
  Age: 47 Year
  Weight: 51 kg

DRUGS (5)
  1. MABTHERA (RITUXIMAB) CONC FOR SOLUTION FOR INFUSION [Suspect]
     Indication: NON-HODGKIN'S LYMPHOMA
     Dosage: 630 MG, INTRAVENOUS
     Route: 042
     Dates: start: 20060821, end: 20060821
  2. IFOSFAMIDE [Suspect]
     Indication: NON-HODGKIN'S LYMPHOMA
     Dosage: 1680 MG, INTRAVENOUS
     Route: 042
     Dates: start: 20060822, end: 20060826
  3. METHOTREXATE [Suspect]
     Indication: NON-HODGKIN'S LYMPHOMA
     Dosage: 50.4 MG, SINGLE, INTRAVENOUS
     Route: 042
     Dates: start: 20060824, end: 20060824
  4. METHOTREXATE [Suspect]
     Indication: NON-HODGKIN'S LYMPHOMA
     Dosage: 50.4 MG, SINGLE, INTRAVENOUS
     Route: 042
     Dates: start: 20060831, end: 20060831
  5. ETOPOSIDE [Suspect]
     Indication: NON-HODGKIN'S LYMPHOMA
     Dosage: 168 MG, INTRAVENOUS
     Route: 042
     Dates: start: 20060822, end: 20060824

REACTIONS (7)
  - ATELECTASIS [None]
  - BRONCHOPULMONARY ASPERGILLOSIS [None]
  - LEUKOPENIA [None]
  - NEUTROPENIA [None]
  - OEDEMA PERIPHERAL [None]
  - PLEURAL EFFUSION [None]
  - SINUS TACHYCARDIA [None]
